FAERS Safety Report 6810021-7 (Version None)
Quarter: 2010Q2

REPORT INFORMATION
  Report Type: 
  Country: None (occurrence: None)
  Receive Date: 20100630
  Receipt Date: 20100621
  Transmission Date: 20101027
  Serious: Yes (Hospitalization)
  Sender: FDA-Public Use
  Company Number: B0657649A

PATIENT
  Sex: Male
  Weight: 3.03 kg

DRUGS (13)
  1. PAXIL [Suspect]
     Indication: ANXIETY
     Dosage: 20MG PER DAY
     Dates: start: 20091201, end: 20100318
  2. MEILAX [Suspect]
     Indication: ANXIETY
     Dosage: 2MG PER DAY
     Dates: start: 20091201, end: 20100224
  3. MEILAX [Suspect]
     Dosage: 4MG PER DAY
     Dates: start: 20100224, end: 20100303
  4. MEILAX [Suspect]
     Dosage: 1MG PER DAY
     Dates: start: 20100303, end: 20100310
  5. MEILAX [Suspect]
     Dosage: .5MG PER DAY
     Dates: start: 20100310, end: 20100318
  6. HIRNAMIN [Suspect]
     Indication: ANXIETY
     Dosage: 5MG PER DAY
     Dates: start: 20100301, end: 20100318
  7. RESLIN [Suspect]
     Indication: ANXIETY
     Dosage: 25MG PER DAY
     Dates: start: 20090701, end: 20091201
  8. RESLIN [Suspect]
     Indication: INSOMNIA
     Dosage: 25MG PER DAY
     Dates: start: 20100303, end: 20100318
  9. MYSLEE [Suspect]
     Indication: ANXIETY
     Dosage: 10MG PER DAY
     Dates: start: 20090701, end: 20100317
  10. MYSLEE [Suspect]
     Indication: INSOMNIA
     Dosage: 20MG PER DAY
     Dates: start: 20100317, end: 20100318
  11. LENDORMIN [Concomitant]
     Indication: INSOMNIA
     Dosage: .25MG PER DAY
     Dates: start: 20091201, end: 20100303
  12. DORAL [Concomitant]
     Indication: INSOMNIA
     Dosage: 1IUAX PER DAY
     Dates: start: 20091201, end: 20100303
  13. MARCAINE [Concomitant]
     Dosage: 2.4ML PER DAY
     Dates: start: 20100319, end: 20100319

REACTIONS (3)
  - DRUG EXPOSURE DURING PREGNANCY [None]
  - DRUG WITHDRAWAL SYNDROME NEONATAL [None]
  - RESPIRATORY DISORDER NEONATAL [None]
